FAERS Safety Report 25908009 (Version 3)
Quarter: 2025Q4

REPORT INFORMATION
  Report Type: Spontaneous
  Country: US (occurrence: US)
  Receive Date: 20251010
  Receipt Date: 20251223
  Transmission Date: 20260117
  Serious: Yes (Hospitalization)
  Sender: MALLINCKRODT
  Company Number: US-MALLINCKRODT-MNK202506160

PATIENT
  Age: 58 Year
  Sex: Female
  Weight: 166 kg

DRUGS (3)
  1. CORTICOTROPIN [Suspect]
     Active Substance: CORTICOTROPIN
     Indication: Nephrotic syndrome
     Route: 058
     Dates: start: 202304
  2. CALCIUM [Concomitant]
     Active Substance: CALCIUM
     Dosage: UNKNOWN
  3. VITAMIN B3 [Concomitant]
     Active Substance: NIACIN
     Dosage: UNKNOWN

REACTIONS (1)
  - Dermatitis contact [Recovered/Resolved]
